FAERS Safety Report 5726127-X (Version None)
Quarter: 2008Q2

REPORT INFORMATION
  Report Type: 
  Country: None (occurrence: None)
  Receive Date: 20080501
  Receipt Date: 20080501
  Transmission Date: 20081010
  Serious: Yes (Life-Threatening, Other)
  Sender: FDA-Public Use
  Company Number: None

PATIENT
  Age: 41 Year
  Sex: Male
  Weight: 90.7194 kg

DRUGS (1)
  1. DIGITEK   .25MG  BERTEK [Suspect]
     Indication: ATRIAL FIBRILLATION
     Dosage: .25MG ONCE A DAY
     Dates: start: 20080108, end: 20080430

REACTIONS (2)
  - BLOOD PRESSURE DECREASED [None]
  - DIZZINESS [None]
